FAERS Safety Report 6832202-9 (Version None)
Quarter: 2010Q3

REPORT INFORMATION
  Report Type: 
  Country: None (occurrence: None)
  Receive Date: 20100707
  Receipt Date: 20100625
  Transmission Date: 20110219
  Serious: Yes (Hospitalization)
  Sender: FDA-Public Use
  Company Number: 008753

PATIENT
  Age: 59 Year
  Sex: Male

DRUGS (17)
  1. PLETAL [Suspect]
     Indication: CEREBRAL INFARCTION
     Dosage: 100 MG, BID, ORAL
     Route: 048
     Dates: start: 20090731
  2. PROGRAF [Suspect]
     Indication: RENAL TRANSPLANT
     Dosage: 2 MG, BID, ORAL; 1.5 MG, BID, ORAL
     Route: 048
     Dates: end: 20090811
  3. PROGRAF [Suspect]
     Indication: RENAL TRANSPLANT
     Dosage: 2 MG, BID, ORAL; 1.5 MG, BID, ORAL
     Route: 048
     Dates: start: 20090812
  4. CELLCEPT [Suspect]
  5. PREDNISOLONE [Concomitant]
  6. RABEPRAZOLE SODIUM [Concomitant]
  7. MUCOSTA (REBAMIPIDE) [Concomitant]
  8. LASIX [Concomitant]
  9. ASPIRIN [Concomitant]
  10. RISPERDAL [Concomitant]
  11. GASMOTIN (MOSAPRIDE CITRATE) [Concomitant]
  12. ALLOPURINOL [Concomitant]
  13. LIPITOR [Concomitant]
  14. PURSENNID (SENNOSIDE) [Concomitant]
  15. URSO 250 [Concomitant]
  16. LANTUS [Concomitant]
  17. NOVORAPID (INSULIN ASPART (GENETICAL RECOMBINATION) [Concomitant]

REACTIONS (5)
  - DRUG INTERACTION [None]
  - IMMUNOSUPPRESSANT DRUG LEVEL INCREASED [None]
  - KIDNEY FIBROSIS [None]
  - RENAL IMPAIRMENT [None]
  - RENAL TUBULAR ATROPHY [None]
